FAERS Safety Report 6706277-1 (Version None)
Quarter: 2010Q2

REPORT INFORMATION
  Report Type: 
  Country: None (occurrence: None)
  Receive Date: 20100503
  Receipt Date: 20100421
  Transmission Date: 20101027
  Serious: Yes (Other)
  Sender: FDA-Public Use
  Company Number: US-PFIZER INC-2010050848

PATIENT
  Sex: Male
  Weight: 88.435 kg

DRUGS (10)
  1. DEPO-TESTOSTERONE [Suspect]
     Indication: BLOOD TESTOSTERONE DECREASED
     Dosage: 200 MG/ML, UNK
  2. DEPO-TESTOSTERONE [Suspect]
     Dosage: 300 MG/ML, UNK
  3. PREDNISONE [Suspect]
     Indication: SYSTEMIC LUPUS ERYTHEMATOSUS
     Dosage: 30 MG, 2X/DAY
     Route: 048
     Dates: start: 19950101
  4. FENTANYL [Concomitant]
     Indication: PAIN
     Dosage: 50 UG, EVERY 72HOURS
     Route: 062
  5. PLAQUENIL [Concomitant]
     Indication: SYSTEMIC LUPUS ERYTHEMATOSUS
     Dosage: 200 MG, 2X/DAY
     Route: 048
  6. METFORMIN [Concomitant]
     Indication: DIABETES MELLITUS
     Dosage: 1000 MG, 2X/DAY
  7. CELLCEPT [Concomitant]
     Indication: PROPHYLAXIS AGAINST TRANSPLANT REJECTION
     Dosage: 500 MG, 3X/DAY
  8. PROGESTERONE [Concomitant]
     Indication: SYSTEMIC LUPUS ERYTHEMATOSUS
     Dosage: 5 MG, 1X/DAY
  9. INSULIN [Concomitant]
     Indication: DIABETES MELLITUS
     Dosage: 25 IU, 2X/DAY
  10. LIDOCAINE [Concomitant]
     Indication: FIBROMYALGIA
     Dosage: UNK
     Route: 062

REACTIONS (3)
  - ARTHROPATHY [None]
  - INJECTION SITE PAIN [None]
  - OSTEONECROSIS [None]
